FAERS Safety Report 6331055-5 (Version None)
Quarter: 2009Q3

REPORT INFORMATION
  Report Type: 
  Country: None (occurrence: None)
  Receive Date: 20090827
  Receipt Date: 20090819
  Transmission Date: 20100115
  Serious: Yes (Life-Threatening, Hospitalization, Other)
  Sender: FDA-Public Use
  Company Number: B0571359A

PATIENT
  Age: 13 Year
  Sex: Male

DRUGS (9)
  1. ATRIANCE [Suspect]
     Dosage: 665MG PER DAY
     Route: 065
     Dates: start: 20090319, end: 20090323
  2. ETOPOSIDE [Concomitant]
     Dosage: 152MG PER DAY
     Route: 065
     Dates: start: 20090319, end: 20090323
  3. CYCLOPHOSPHAMIDE [Concomitant]
     Dosage: 480MG PER DAY
     Route: 065
     Dates: start: 20090319, end: 20090323
  4. VINCRISTINE [Concomitant]
     Dates: start: 20090201
  5. DAUNORUBICIN HCL [Concomitant]
  6. ELSPAR [Concomitant]
  7. METHOTREXATE SODIUM [Concomitant]
  8. CYTARABINE [Concomitant]
     Route: 050
  9. CORTICOSTEROIDS [Concomitant]
     Dates: start: 20090201

REACTIONS (10)
  - ACUTE RESPIRATORY FAILURE [None]
  - AUTOMATIC BLADDER [None]
  - CONDITION AGGRAVATED [None]
  - GUILLAIN-BARRE SYNDROME [None]
  - MUSCULAR WEAKNESS [None]
  - OPTIC NEUROPATHY [None]
  - PARAESTHESIA [None]
  - PERIPHERAL SENSORIMOTOR NEUROPATHY [None]
  - RESPIRATORY DISTRESS [None]
  - SOMNOLENCE [None]
